FAERS Safety Report 20727745 (Version 1)
Quarter: 2022Q2

REPORT INFORMATION
  Report Type: Spontaneous
  Country: US (occurrence: None)
  Receive Date: 20220419
  Receipt Date: 20220419
  Transmission Date: 20220721
  Serious: No
  Sender: FDA-Public Use
  Company Number: US-ROCHE-3010407

PATIENT
  Sex: Female
  Weight: 79.450 kg

DRUGS (4)
  1. KADCYLA [Suspect]
     Active Substance: ADO-TRASTUZUMAB EMTANSINE
     Indication: Inflammatory carcinoma of the breast
     Dosage: YES
     Route: 042
  2. AMILORIDE [Concomitant]
     Active Substance: AMILORIDE
     Indication: Hypertension
     Dosage: YES
     Route: 048
  3. ATENOLOL;HYDROCHLOROTHIAZIDE [Concomitant]
     Indication: Hypertension
     Dosage: ATENOLOL/HYDROCHLOROTHIAZIDE 50/25 MG ;ONGOING: NO
     Route: 048
  4. ATENOLOL [Concomitant]
     Active Substance: ATENOLOL
     Indication: Hypertension
     Dosage: YES
     Route: 048

REACTIONS (6)
  - Off label use [Unknown]
  - Epistaxis [Not Recovered/Not Resolved]
  - Insomnia [Not Recovered/Not Resolved]
  - Blood potassium decreased [Recovered/Resolved]
  - Hepatic enzyme decreased [Recovered/Resolved]
  - Rhinorrhoea [Not Recovered/Not Resolved]

NARRATIVE: CASE EVENT DATE: 20180101
